FAERS Safety Report 4846652-3 (Version None)
Quarter: 2005Q4

REPORT INFORMATION
  Report Type: 
  Country: None (occurrence: None)
  Receive Date: 20051206
  Receipt Date: 20050802
  Transmission Date: 20060501
  Serious: Yes (Hospitalization, Congenital Anomaly, Other)
  Sender: FDA-Public Use
  Company Number: PHEH2005US08594

PATIENT
  Sex: Male
  Weight: 2.85 kg

DRUGS (6)
  1. DIOVAN [Suspect]
     Route: 064
  2. NEXIUM [Concomitant]
     Route: 064
  3. XANAX [Concomitant]
     Route: 064
  4. NORVASK [Concomitant]
     Route: 064
  5. PROZAC [Concomitant]
     Route: 064
  6. CRESTOR [Concomitant]
     Route: 064

REACTIONS (13)
  - ANAEMIA [None]
  - ANURIA [None]
  - BLOOD CREATININE INCREASED [None]
  - CONGENITAL ANOMALY [None]
  - DRUG EXPOSURE DURING PREGNANCY [None]
  - GENERALISED OEDEMA [None]
  - HYPERGLYCAEMIA [None]
  - HYPOGLYCAEMIA [None]
  - NEONATAL DISORDER [None]
  - PERITONEAL DIALYSIS [None]
  - PREMATURE BABY [None]
  - RENAL FAILURE NEONATAL [None]
  - SEPSIS [None]
